FAERS Safety Report 6636389-2 (Version None)
Quarter: 2010Q1

REPORT INFORMATION
  Report Type: 
  Country: None (occurrence: None)
  Receive Date: 20100226
  Receipt Date: 20091030
  Transmission Date: 20100710
  Serious: Yes (Other)
  Sender: FDA-Public Use
  Company Number: WAES 0911USA01206

PATIENT
  Age: 74 Year
  Sex: Male

DRUGS (5)
  1. PRINIVIL [Suspect]
     Dosage: PO
     Route: 048
  2. TAB ONGLYZA UNK [Suspect]
     Indication: TYPE 2 DIABETES MELLITUS
     Dosage: 5 MG/DAILY/PO
     Route: 048
     Dates: start: 20090909, end: 20091006
  3. PRANDIN [Concomitant]
  4. METFORMIN HYDROCHLORIDE [Concomitant]
  5. PRAVASTATIN SODIUM [Concomitant]

REACTIONS (3)
  - DERMATITIS [None]
  - EYE SWELLING [None]
  - SWELLING FACE [None]
